FAERS Safety Report 6086850-7 (Version None)
Quarter: 2009Q1

REPORT INFORMATION
  Report Type: 
  Country: None (occurrence: None)
  Receive Date: 20090211
  Receipt Date: 20090204
  Transmission Date: 20090719
  Serious: Yes (Other)
  Sender: FDA-Public Use
  Company Number: CHPA2009US02567

PATIENT
  Age: 39 Year
  Sex: Male

DRUGS (7)
  1. BENEFIBER W/WHEAT DEXTRIN (NCH) (WHEAT DEXTRIN) POWDER [Suspect]
     Indication: NUTRITIONAL SUPPORT
     Dosage: 2 TSP, TID, ORAL
     Route: 048
     Dates: start: 20080101
  2. KEPPRA [Concomitant]
  3. CARBATROL [Concomitant]
  4. LASIX [Concomitant]
  5. POTASSIUM (POTASSIUM) [Concomitant]
  6. MAGNESIUM (MAGNESIUM) [Concomitant]
  7. VITAMIN B6 [Concomitant]

REACTIONS (3)
  - ABDOMINAL DISTENSION [None]
  - CLOSTRIDIAL INFECTION [None]
  - DIARRHOEA [None]
